FAERS Safety Report 5467776-6 (Version None)
Quarter: 2007Q3

REPORT INFORMATION
  Report Type: 
  Country: None (occurrence: None)
  Receive Date: 20070814
  Receipt Date: 20070705
  Transmission Date: 20080115
  Serious: No
  Sender: FDA-Public Use
  Company Number: 200714864US

PATIENT
  Sex: Female

DRUGS (3)
  1. APIDRA [Suspect]
     Dosage: 30 U QD INJ
  2. NSULIN GLARGINE (LANTUS) [Concomitant]
  3. INSULIN INJECTION, ISOPHANE (NPH INSULIN) [Concomitant]

REACTIONS (1)
  - WEIGHT INCREASED [None]
